FAERS Safety Report 19521737 (Version 1)
Quarter: 2021Q3

REPORT INFORMATION
  Report Type: Spontaneous
  Country: CA (occurrence: CA)
  Receive Date: 20210712
  Receipt Date: 20210712
  Transmission Date: 20211014
  Serious: Yes (Life-Threatening, Hospitalization, Other)
  Sender: FDA-Public Use
  Company Number: CA-PFIZER INC-2021796903

PATIENT
  Age: 5 Year
  Sex: Female
  Weight: 16 kg

DRUGS (62)
  1. ACETAMINOPHEN. [Concomitant]
     Active Substance: ACETAMINOPHEN
     Dosage: UNK
  2. CLINDAMYCIN. [Concomitant]
     Active Substance: CLINDAMYCIN
     Dosage: UNK
     Route: 065
  3. DEXMEDETOMIDINE. [Concomitant]
     Active Substance: DEXMEDETOMIDINE
     Dosage: UNK
  4. FAMOTIDINE. [Concomitant]
     Active Substance: FAMOTIDINE
     Dosage: UNK
  5. HYDROCORTISONE. [Concomitant]
     Active Substance: HYDROCORTISONE
     Dosage: UNK
  6. IBUPROFEN. [Concomitant]
     Active Substance: IBUPROFEN
     Dosage: UNK
  7. PENICILLIN [BENZYLPENICILLIN] [Concomitant]
     Active Substance: PENICILLIN G
     Dosage: UNK
  8. POLYETHYLENE GLYCOL [MACROGOL] [Concomitant]
     Active Substance: POLYETHYLENE GLYCOLS
     Dosage: UNK
  9. HEPARIN SODIUM. [Suspect]
     Active Substance: HEPARIN SODIUM
     Indication: COAGULOPATHY
     Dosage: 28 IU/KG
  10. CEFAZOLIN [Concomitant]
     Active Substance: CEFAZOLIN
     Dosage: UNK
  11. EPINEPHRINE. [Concomitant]
     Active Substance: EPINEPHRINE
     Dosage: UNK
  12. PRISMOCAL [Concomitant]
     Active Substance: LACTIC ACID\MAGNESIUM CHLORIDE\SODIUM CARBONATE\SODIUM CHLORIDE
     Dosage: UNK
  13. ROCURONIUM [Concomitant]
     Active Substance: ROCURONIUM BROMIDE
     Dosage: UNK
  14. SODIUM [Concomitant]
     Active Substance: SODIUM
     Dosage: UNK
  15. CALCIUM [Concomitant]
     Active Substance: CALCIUM
     Dosage: UNK
  16. GABAPENTIN. [Concomitant]
     Active Substance: GABAPENTIN
     Dosage: UNK
  17. CLOBAZAM. [Concomitant]
     Active Substance: CLOBAZAM
     Dosage: UNK
  18. FUROSEMIDE. [Concomitant]
     Active Substance: FUROSEMIDE
     Dosage: UNK
  19. LORAZEPAM. [Concomitant]
     Active Substance: LORAZEPAM
     Dosage: UNK
  20. MAGNESIUM [Concomitant]
     Active Substance: MAGNESIUM
     Dosage: UNK
  21. MELATONIN [Concomitant]
     Active Substance: MELATONIN
     Dosage: UNK
  22. RANITIDINE. [Concomitant]
     Active Substance: RANITIDINE
     Dosage: UNK
  23. TRANEXAMIC ACID. [Concomitant]
     Active Substance: TRANEXAMIC ACID
     Dosage: UNK
  24. ALTEPLASE. [Concomitant]
     Active Substance: ALTEPLASE
     Dosage: UNK
  25. ALUMINUM HYDROXIDE [ALUMINIUM HYDROXIDE] [Concomitant]
     Active Substance: ALUMINUM HYDROXIDE
     Dosage: UNK
  26. CEFOTAXIME [Concomitant]
     Active Substance: CEFOTAXIME SODIUM
     Dosage: UNK
  27. CHLORHEXIDINE [Concomitant]
     Active Substance: CHLORHEXIDINE
     Dosage: UNK
  28. DEXAMETHASONE. [Concomitant]
     Active Substance: DEXAMETHASONE
     Dosage: UNK
     Route: 065
  29. HYDRALAZINE [Concomitant]
     Active Substance: HYDRALAZINE HYDROCHLORIDE
     Dosage: UNK
  30. HYDROCHLOROTHIAZIDE. [Concomitant]
     Active Substance: HYDROCHLOROTHIAZIDE
     Dosage: UNK
  31. LEVETIRACETAM. [Concomitant]
     Active Substance: LEVETIRACETAM
     Dosage: UNK
  32. METRONIDAZOLE. [Concomitant]
     Active Substance: METRONIDAZOLE
     Dosage: UNK
  33. MORPHINE [Concomitant]
     Active Substance: MORPHINE
     Dosage: UNK
  34. NOREPINEPHRINE. [Concomitant]
     Active Substance: NOREPINEPHRINE
     Dosage: UNK
  35. OLANZAPINE. [Concomitant]
     Active Substance: OLANZAPINE
     Dosage: UNK
  36. PHENTOLAMINE [Concomitant]
     Active Substance: PHENTOLAMINE
     Dosage: UNK
  37. POLYSTYRENE SULFONATE SODIUM [Concomitant]
     Active Substance: SODIUM POLYSTYRENE SULFONATE
     Dosage: UNK
  38. CARDENE [Concomitant]
     Active Substance: NICARDIPINE HYDROCHLORIDE
     Dosage: UNK
  39. FENTANYL. [Concomitant]
     Active Substance: FENTANYL
     Dosage: UNK
  40. FLUCONAZOLE. [Concomitant]
     Active Substance: FLUCONAZOLE
     Dosage: UNK
  41. GLYCERIN [GLYCEROL] [Concomitant]
     Active Substance: GLYCERIN
     Dosage: UNK
  42. METOCLOPRAMIDE. [Concomitant]
     Active Substance: METOCLOPRAMIDE
     Dosage: UNK
  43. ONDANSETRON [Concomitant]
     Active Substance: ONDANSETRON
     Dosage: UNK
  44. PANTOPRAZOLE [Concomitant]
     Active Substance: PANTOPRAZOLE
     Dosage: UNK
  45. PRAZOSIN. [Concomitant]
     Active Substance: PRAZOSIN
     Dosage: UNK
  46. BACLOFEN. [Concomitant]
     Active Substance: BACLOFEN
     Dosage: UNK
  47. CLOXACILLIN [Concomitant]
     Active Substance: CLOXACILLIN
     Dosage: UNK
  48. KETAMINE [Concomitant]
     Active Substance: KETAMINE
     Dosage: UNK
  49. MEROPENEM. [Concomitant]
     Active Substance: MEROPENEM
     Dosage: UNK
  50. NALOXONE [Concomitant]
     Active Substance: NALOXONE
     Dosage: UNK
  51. NIFEDIPINE. [Concomitant]
     Active Substance: NIFEDIPINE
     Dosage: UNK
  52. NITRAZEPAM [Concomitant]
     Active Substance: NITRAZEPAM
     Dosage: UNK
  53. SEVELAMER [Concomitant]
     Active Substance: SEVELAMER
     Dosage: UNK
  54. AMLODIPINE [Concomitant]
     Active Substance: AMLODIPINE BESYLATE
     Dosage: UNK
  55. CIPROFLOXACIN. [Concomitant]
     Active Substance: CIPROFLOXACIN
     Dosage: UNK
  56. CLONIDINE. [Concomitant]
     Active Substance: CLONIDINE
     Dosage: UNK
  57. DEXTROSE. [Concomitant]
     Active Substance: DEXTROSE
     Dosage: UNK
  58. HYDROMORPHONE [Concomitant]
     Active Substance: HYDROMORPHONE
     Dosage: UNK
  59. LABETALOL [Concomitant]
     Active Substance: LABETALOL\LABETALOL HYDROCHLORIDE
     Dosage: UNK
  60. METOLAZONE. [Concomitant]
     Active Substance: METOLAZONE
     Dosage: UNK
  61. MILRINONE [Concomitant]
     Active Substance: MILRINONE
     Dosage: UNK
  62. PROPOFOL. [Concomitant]
     Active Substance: PROPOFOL
     Dosage: UNK

REACTIONS (6)
  - Disturbance in attention [Unknown]
  - Cerebellar haemorrhage [Unknown]
  - Coma [Unknown]
  - Headache [Unknown]
  - Hydrocephalus [Unknown]
  - Cerebrospinal fluid leakage [Unknown]
